FAERS Safety Report 11403846 (Version 1)
Quarter: 2015Q3

REPORT INFORMATION
  Report Type: Spontaneous
  Country: JP (occurrence: JP)
  Receive Date: 20150821
  Receipt Date: 20150821
  Transmission Date: 20151125
  Serious: Yes (Death)
  Sender: FDA-Public Use
  Company Number: JP-ROXANE LABORATORIES, INC.-2015-RO-01360RO

PATIENT
  Age: 10 Year
  Sex: Male
  Weight: 73.1 kg

DRUGS (4)
  1. ARIPIPRAZOLE. [Suspect]
     Active Substance: ARIPIPRAZOLE
     Indication: AUTISM SPECTRUM DISORDER
     Dosage: 3 MG
     Route: 065
  2. SERTRALINE [Suspect]
     Active Substance: SERTRALINE HYDROCHLORIDE
     Indication: AUTISM SPECTRUM DISORDER
     Dosage: 25 MG
     Route: 065
  3. PIMOZIDE [Suspect]
     Active Substance: PIMOZIDE
     Indication: AUTISM SPECTRUM DISORDER
     Dosage: 3 MG
     Route: 065
  4. JAPANESE ENCEPHALITIS VIRUS VACCINE INACTIVATED [Suspect]
     Active Substance: JAPANESE ENCEPHALITIS VIRUS STRAIN NAKAYAMA-NIH ANTIGEN (FORMALDEHYDE INACTIVATED)
     Indication: IMMUNISATION
     Route: 030

REACTIONS (3)
  - Sudden cardiac death [Fatal]
  - Arrhythmia [Fatal]
  - Cardio-respiratory arrest [Fatal]
